FAERS Safety Report 6033083-6 (Version None)
Quarter: 2009Q1

REPORT INFORMATION
  Report Type: 
  Country: None (occurrence: None)
  Receive Date: 20090105
  Receipt Date: 20071204
  Transmission Date: 20090719
  Serious: Yes (Other)
  Sender: FDA-Public Use
  Company Number: BDI-010652

PATIENT
  Age: 20 Year
  Sex: Female
  Weight: 82 kg

DRUGS (2)
  1. MULTIHANCE [Suspect]
     Indication: COMPUTERISED TOMOGRAM
     Dosage: 17ML ONCE , INTRAVENOUS (NOT OTHERWISE SPECIFIED)
     Route: 042
     Dates: start: 20071107, end: 20071107
  2. MULTIHANCE [Suspect]
     Indication: NUCLEAR MAGNETIC RESONANCE IMAGING BRAIN
     Dosage: 17ML ONCE , INTRAVENOUS (NOT OTHERWISE SPECIFIED)
     Route: 042
     Dates: start: 20071107, end: 20071107

REACTIONS (1)
  - HYPERSENSITIVITY [None]
